FAERS Safety Report 8630624 (Version 5)
Quarter: 2013Q3

REPORT INFORMATION
  Report Type: Spontaneous
  Country: US (occurrence: US)
  Receive Date: 20120622
  Receipt Date: 20130830
  Transmission Date: 20140515
  Serious: Yes (Hospitalization, Disabling, Other)
  Sender: FDA-Public Use
  Company Number: US-EISAI INC-E3810-05625-SPO-US

PATIENT
  Age: 58 Year
  Sex: Male
  Weight: 64 kg

DRUGS (23)
  1. ACIPHEX (RABEPRAZOLE) [Suspect]
     Indication: GASTROOESOPHAGEAL REFLUX DISEASE
     Dosage: UNKNOWN
     Route: 048
     Dates: start: 200804, end: 201009
  2. PREVACID [Suspect]
     Indication: GASTROOESOPHAGEAL REFLUX DISEASE
     Dosage: UNKNOWN
     Dates: start: 200804, end: 201009
  3. ZEGERID [Suspect]
     Indication: GASTROOESOPHAGEAL REFLUX DISEASE
     Dosage: UNKNOWN
     Dates: start: 200804, end: 201009
  4. NEXIUM [Suspect]
     Indication: GASTROOESOPHAGEAL REFLUX DISEASE
     Dosage: UNKNOWN
     Dates: start: 200804, end: 201009
  5. KAPIDEX [Suspect]
     Indication: GASTROOESOPHAGEAL REFLUX DISEASE
     Dosage: UNKNOWN
     Dates: start: 200804
  6. KAPIDEX [Suspect]
     Dosage: UNKNOWN
     Dates: start: 20100531, end: 201009
  7. DEXILANT [Suspect]
     Indication: GASTROOESOPHAGEAL REFLUX DISEASE
     Dosage: UNKNOWN
     Dates: start: 200804, end: 201009
  8. PROTONIX [Suspect]
     Indication: GASTROOESOPHAGEAL REFLUX DISEASE
     Dosage: UNKNOWN
  9. DIOVAN [Concomitant]
     Route: 048
  10. MAGNESIUM OXIDE [Concomitant]
     Route: 048
  11. ZANTAC [Concomitant]
     Route: 048
  12. AMBIEN [Concomitant]
     Route: 048
  13. ALBUTEROL SULFATE NEBU [Concomitant]
  14. THEO-DUR [Concomitant]
     Route: 048
  15. VENTOLIN [Concomitant]
     Route: 048
  16. POTASSIUM [Concomitant]
     Route: 048
  17. DARVOCET [Concomitant]
     Route: 048
  18. MULTIVITAMIN [Concomitant]
     Route: 048
  19. VITAMIN C [Concomitant]
     Route: 048
  20. KYOLIC [Concomitant]
     Route: 048
  21. KAPIDEX [Concomitant]
     Route: 048
  22. CARAFATE [Concomitant]
  23. ANDROGEL [Concomitant]

REACTIONS (19)
  - Cardiac disorder [Recovered/Resolved]
  - Muscle spasms [Recovered/Resolved]
  - Fatigue [Recovered/Resolved]
  - Gastritis erosive [Not Recovered/Not Resolved]
  - Oesophageal ulcer [Not Recovered/Not Resolved]
  - Emotional distress [Unknown]
  - Confusional state [Recovered/Resolved]
  - Muscle spasms [Recovered/Resolved]
  - Pain [Unknown]
  - Hypomagnesaemia [Recovered/Resolved]
  - Dizziness [Recovered/Resolved]
  - Viral infection [Unknown]
  - Renal failure acute [Unknown]
  - Bowel movement irregularity [Not Recovered/Not Resolved]
  - Hyperkeratosis [Unknown]
  - Hyperkeratosis [Unknown]
  - Rhinitis allergic [Unknown]
  - Upper respiratory tract infection [Unknown]
  - Diarrhoea [Unknown]
